FAERS Safety Report 4709081-9 (Version None)
Quarter: 2005Q3

REPORT INFORMATION
  Report Type: 
  Country: None (occurrence: None)
  Receive Date: 20050707
  Receipt Date: 20050707
  Transmission Date: 20060218
  Serious: Yes (Hospitalization)
  Sender: FDA-Public Use
  Company Number: None

PATIENT
  Age: 54 Year
  Sex: Male

DRUGS (5)
  1. TAXOL [Suspect]
  2. OXYCODONE HCL [Concomitant]
  3. SCOPALOMINE PATCH [Concomitant]
  4. GUAIFENISEN [Concomitant]
  5. ALBUMIN (HUMAN) [Concomitant]

REACTIONS (1)
  - DEVICE FAILURE [None]
